FAERS Safety Report 14273510 (Version 1)
Quarter: 2017Q4

REPORT INFORMATION
  Report Type: Spontaneous
  Country: TH (occurrence: TH)
  Receive Date: 20171211
  Receipt Date: 20171211
  Transmission Date: 20180321
  Serious: Yes (Hospitalization)
  Sender: FDA-Public Use
  Company Number: TH-OTSUKA-2015_015605

PATIENT
  Age: 46 Year
  Sex: Male

DRUGS (6)
  1. LAMOTRIGINE. [Suspect]
     Active Substance: LAMOTRIGINE
     Dosage: 100 UNK, UNK
     Route: 048
     Dates: start: 20151117, end: 20151121
  2. LAMOTRIGINE. [Suspect]
     Active Substance: LAMOTRIGINE
     Indication: BIPOLAR DISORDER
     Dosage: 25 MG, UNK
     Route: 048
     Dates: start: 20151010, end: 20151117
  3. ABILIFY [Suspect]
     Active Substance: ARIPIPRAZOLE
     Dosage: 15 UNK, UNK
     Route: 048
     Dates: start: 20151117, end: 20151121
  4. ABILIFY [Suspect]
     Active Substance: ARIPIPRAZOLE
     Indication: BIPOLAR DISORDER
     Dosage: 10 MG, UNK
     Route: 048
     Dates: start: 20151010, end: 20151117
  5. LAMICTAL [Suspect]
     Active Substance: LAMOTRIGINE
     Indication: BIPOLAR DISORDER
     Dosage: 25 MG, UNK
     Route: 048
     Dates: start: 20151010, end: 20151117
  6. LAMICTAL [Suspect]
     Active Substance: LAMOTRIGINE
     Dosage: 100 UNK, UNK
     Route: 048
     Dates: start: 20151117, end: 20151121

REACTIONS (4)
  - Nausea [Recovered/Resolved]
  - Insomnia [Not Recovered/Not Resolved]
  - Vomiting [Recovered/Resolved]
  - Restlessness [Not Recovered/Not Resolved]

NARRATIVE: CASE EVENT DATE: 201511
